FAERS Safety Report 6032538-8 (Version None)
Quarter: 2009Q1

REPORT INFORMATION
  Report Type: 
  Country: None (occurrence: None)
  Receive Date: 20090109
  Receipt Date: 20081209
  Transmission Date: 20090719
  Serious: No
  Sender: FDA-Public Use
  Company Number: A0759617A

PATIENT
  Age: 66 Year
  Sex: Female

DRUGS (3)
  1. TYKERB [Suspect]
     Indication: BREAST CANCER
     Dosage: 1TAB FIVE TIMES PER DAY
     Route: 048
     Dates: start: 20080301
  2. HERCEPTIN [Concomitant]
  3. UNSPECIFIED MEDICATION [Concomitant]
     Route: 061

REACTIONS (2)
  - DIARRHOEA [None]
  - RASH [None]
